FAERS Safety Report 4839787-2 (Version None)
Quarter: 2005Q4

REPORT INFORMATION
  Report Type: 
  Country: None (occurrence: None)
  Receive Date: 20051129
  Receipt Date: 20050908
  Transmission Date: 20060501
  Serious: No
  Sender: FDA-Public Use
  Company Number: US-GLAXOSMITHKLINE-A0573498A

PATIENT
  Sex: Female

DRUGS (5)
  1. WELLBUTRIN SR [Suspect]
     Indication: DEPRESSION
     Dosage: 100MG PER DAY
     Route: 048
  2. BUPROPION HCL [Suspect]
     Indication: DEPRESSION
     Route: 048
  3. EVISTA [Concomitant]
  4. CALCIUM GLUCONATE [Concomitant]
  5. MULTI-VITAMIN [Concomitant]

REACTIONS (7)
  - DELUSION [None]
  - DENTAL CARIES [None]
  - DRY MOUTH [None]
  - FATIGUE [None]
  - INSOMNIA [None]
  - PARANOIA [None]
  - POLLAKIURIA [None]
